FAERS Safety Report 5341486-8 (Version None)
Quarter: 2007Q2

REPORT INFORMATION
  Report Type: 
  Country: None (occurrence: None)
  Receive Date: 20070530
  Receipt Date: 20070511
  Transmission Date: 20071010
  Serious: Yes (Death, Hospitalization)
  Sender: FDA-Public Use
  Company Number: 2007JP001829

PATIENT
  Age: 69 Year
  Sex: Male

DRUGS (4)
  1. PROGRAF [Suspect]
     Indication: RHEUMATOID ARTHRITIS
     Dosage: 1.5 MG, ORAL
     Route: 048
     Dates: start: 20070201, end: 20070413
  2. PEON (ZALTOPROFEN) [Concomitant]
  3. METHYCOBAL (MECOBALAMIN) [Concomitant]
  4. PREDNISOLONE [Concomitant]

REACTIONS (1)
  - INTERSTITIAL LUNG DISEASE [None]
